FAERS Safety Report 7321457-2 (Version None)
Quarter: 2011Q1

REPORT INFORMATION
  Report Type: 
  Country: None (occurrence: None)
  Receive Date: 20110228
  Receipt Date: 20100518
  Transmission Date: 20110831
  Serious: Yes (Other)
  Sender: FDA-Public Use
  Company Number: US-PFIZER INC-2010063136

PATIENT
  Sex: Female

DRUGS (5)
  1. GEODON [Suspect]
     Indication: BIPOLAR DISORDER
     Dosage: 60 MG, 1X/DAY
     Dates: start: 20051201
  2. LAMICTAL [Suspect]
     Indication: DYSKINESIA
  3. ZOLOFT [Concomitant]
     Dosage: 50 MG
  4. LAMICTAL [Suspect]
     Indication: TARDIVE DYSKINESIA
     Dosage: UNK
     Dates: start: 20100422, end: 20100101
  5. GEODON [Suspect]
     Dosage: 100 MG

REACTIONS (2)
  - RASH [None]
  - TARDIVE DYSKINESIA [None]
